FAERS Safety Report 9636517 (Version 4)
Quarter: 2013Q4

REPORT INFORMATION
  Report Type: Report from Study
  Country: US (occurrence: US)
  Receive Date: 20131021
  Receipt Date: 20131223
  Transmission Date: 20140711
  Serious: Yes (Hospitalization, Other)
  Sender: FDA-Public Use
  Company Number: US-ABBVIE-13P-163-1097084-00

PATIENT
  Age: 27 Year
  Sex: Female

DRUGS (7)
  1. LUPRON DEPOT [Suspect]
     Indication: OFF LABEL USE
     Dates: start: 20121101
  2. LUPRON DEPOT [Suspect]
     Indication: ENDOMETRIOSIS
  3. NEXIUM [Concomitant]
     Indication: DYSPEPSIA
  4. DETROL [Concomitant]
     Indication: BLADDER SPASM
  5. CORGARD [Concomitant]
     Indication: MIGRAINE
  6. PHENTERMINE [Concomitant]
     Indication: APPETITE DISORDER
  7. KEFLEX [Concomitant]
     Indication: PRODUCT USED FOR UNKNOWN INDICATION

REACTIONS (21)
  - Pelvic pain [Recovering/Resolving]
  - Adnexa uteri pain [Recovering/Resolving]
  - Haemorrhoids [Not Recovered/Not Resolved]
  - Trichomoniasis [Not Recovered/Not Resolved]
  - Hot flush [Not Recovered/Not Resolved]
  - Headache [Not Recovered/Not Resolved]
  - Sleep disorder [Not Recovered/Not Resolved]
  - Constipation [Not Recovered/Not Resolved]
  - Nasopharyngitis [Unknown]
  - Sinusitis [Unknown]
  - Cough [Not Recovered/Not Resolved]
  - Chest pain [Not Recovered/Not Resolved]
  - Osteoporosis [Not Recovered/Not Resolved]
  - Off label use [Unknown]
  - Breath sounds abnormal [Not Recovered/Not Resolved]
  - Arthralgia [Not Recovered/Not Resolved]
  - Vaginal discharge [Not Recovered/Not Resolved]
  - Adnexa uteri pain [Not Recovered/Not Resolved]
  - Arthralgia [Not Recovered/Not Resolved]
  - Ovarian cyst [Not Recovered/Not Resolved]
  - Osteoporosis [Not Recovered/Not Resolved]
